FAERS Safety Report 8994747 (Version 2)
Quarter: 2013Q1

REPORT INFORMATION
  Report Type: Spontaneous
  Country: US (occurrence: US)
  Receive Date: 20130102
  Receipt Date: 20130204
  Transmission Date: 20140127
  Serious: No
  Sender: FDA-Public Use
  Company Number: US-AMGEN-USASP2012079373

PATIENT
  Age: 43 Year
  Sex: Male
  Weight: 78.91 kg

DRUGS (2)
  1. ENBREL [Suspect]
     Indication: ANKYLOSING SPONDYLITIS
     Dosage: 50 MG, WEEKLY
     Route: 058
     Dates: start: 20120428
  2. SULFASALAZINE [Concomitant]
     Dosage: 500MG, 2 IN AM AMD 1 PM.

REACTIONS (1)
  - Swollen tongue [Not Recovered/Not Resolved]
